FAERS Safety Report 5739630-3 (Version None)
Quarter: 2008Q2

REPORT INFORMATION
  Report Type: 
  Country: None (occurrence: None)
  Receive Date: 20080515
  Receipt Date: 20070331
  Transmission Date: 20081010
  Serious: Yes (Hospitalization)
  Sender: FDA-Public Use
  Company Number: US-GENENTECH-225791

PATIENT
  Sex: Male

DRUGS (16)
  1. AVASTIN [Suspect]
     Indication: RECTAL CANCER
     Dosage: 5 MG/KG, Q2W
     Route: 042
     Dates: start: 20060110
  2. CETUXIMAB [Suspect]
     Indication: RECTAL CANCER
     Dosage: 400 MG/M2, UNK
     Route: 042
     Dates: start: 20060110
  3. CETUXIMAB [Suspect]
     Dosage: 250 MG/M2, 1/WEEK
     Route: 042
  4. OXALIPLATIN [Suspect]
     Indication: RECTAL CANCER
     Dosage: 85 MG/M2, Q2W
     Route: 042
     Dates: start: 20060110
  5. OXALIPLATIN [Suspect]
     Dosage: 50 MG/M2, Q2W
  6. FLUOROURACIL [Suspect]
     Indication: RECTAL CANCER
     Dosage: 400 MG/M2, Q2W
     Route: 042
     Dates: start: 20060110
  7. FLUOROURACIL [Suspect]
     Dosage: 200 MG/M2, UNK
     Route: 040
  8. FLUOROURACIL [Suspect]
     Dosage: 1600 MG/M2, Q2W
     Route: 042
  9. LEUCOVORIN CALCIUM [Suspect]
     Indication: RECTAL CANCER
     Dosage: 400 MG/M2, Q2W
     Route: 042
     Dates: start: 20060110
  10. AUGMENTIN '125' [Suspect]
     Indication: DRUG USE FOR UNKNOWN INDICATION
  11. DIGOXIN [Suspect]
     Indication: DRUG USE FOR UNKNOWN INDICATION
  12. CLINDAMYCIN HCL [Suspect]
     Indication: DRUG USE FOR UNKNOWN INDICATION
  13. CLOTRIMAZOLE [Suspect]
     Indication: DRUG USE FOR UNKNOWN INDICATION
  14. ENALAPRIL MALEATE [Suspect]
     Indication: DRUG USE FOR UNKNOWN INDICATION
  15. FUROSEMIDE [Suspect]
     Indication: DRUG USE FOR UNKNOWN INDICATION
  16. VANCOMYCIN [Suspect]
     Indication: DRUG USE FOR UNKNOWN INDICATION

REACTIONS (6)
  - ANOREXIA [None]
  - BLOOD CREATININE INCREASED [None]
  - CATHETER RELATED INFECTION [None]
  - FATIGUE [None]
  - MUCOSAL INFLAMMATION [None]
  - RASH [None]
